FAERS Safety Report 5825938-X (Version None)
Quarter: 2008Q3

REPORT INFORMATION
  Report Type: 
  Country: None (occurrence: None)
  Receive Date: 20080729
  Receipt Date: 20080721
  Transmission Date: 20090109
  Serious: Yes (Hospitalization)
  Sender: FDA-Public Use
  Company Number: PHHY2008DE14981

PATIENT
  Age: 70 Year
  Sex: Female

DRUGS (5)
  1. CORDINATE [Suspect]
     Indication: HYPERTENSION
     Dosage: 320 MG, QD
     Route: 048
     Dates: start: 20071114, end: 20080410
  2. KARVEZIDE [Concomitant]
  3. AMLODIPIN ^ORIFARM^ [Concomitant]
  4. SIMVASTATIN [Concomitant]
     Dosage: UNK
  5. ASS ^CT-ARZNEIMITTEL^ [Concomitant]
     Dosage: UNK

REACTIONS (2)
  - CEREBROVASCULAR ACCIDENT [None]
  - TRANSIENT ISCHAEMIC ATTACK [None]
